FAERS Safety Report 7825424-1 (Version None)
Quarter: 2011Q4

REPORT INFORMATION
  Report Type: 
  Country: None (occurrence: None)
  Receive Date: 20111019
  Receipt Date: 20111011
  Transmission Date: 20120403
  Serious: Yes (Hospitalization)
  Sender: FDA-Public Use
  Company Number: US-ABBOTT-11P-163-0861972-00

PATIENT
  Sex: Female
  Weight: 74.91 kg

DRUGS (6)
  1. HUMIRA [Suspect]
     Indication: PSORIASIS
     Route: 050
     Dates: start: 20110106
  2. PRANDIN [Concomitant]
     Indication: DIABETES MELLITUS
  3. TACLONEX [Concomitant]
     Indication: PSORIASIS
     Dosage: APPLY TO AFFECTED AREAS
  4. METOPROLOL TARTRATE [Concomitant]
     Indication: HYPERTENSION
  5. LANTUS [Concomitant]
     Indication: DIABETES MELLITUS
  6. SIMVASTATIN [Concomitant]
     Indication: PRODUCT USED FOR UNKNOWN INDICATION
     Dates: end: 20110701

REACTIONS (3)
  - VOMITING [None]
  - MYALGIA [None]
  - ABDOMINAL HERNIA [None]
